FAERS Safety Report 17144774 (Version 1)
Quarter: 2019Q4

REPORT INFORMATION
  Report Type: Spontaneous
  Country: US (occurrence: US)
  Receive Date: 20191212
  Receipt Date: 20191212
  Transmission Date: 20200122
  Serious: No
  Sender: FDA-Public Use
  Company Number: US-NOVEN PHARMACEUTICALS, INC.-US2019000334

PATIENT

DRUGS (3)
  1. ESTRADIOL(GP) [Suspect]
     Active Substance: ESTRADIOL
     Indication: PRODUCT USED FOR UNKNOWN INDICATION
     Dosage: 0.025 MG, UNKNOWN
     Route: 062
  2. PROMETRIUM [Concomitant]
     Active Substance: PROGESTERONE
     Dosage: 200 MG, UNKNOWN
  3. ESTRADIOL(GP) [Suspect]
     Active Substance: ESTRADIOL
     Dosage: 0.0375 MG, UNK
     Route: 062
     Dates: start: 2019

REACTIONS (4)
  - Product packaging quantity issue [Recovered/Resolved]
  - Product dispensing error [Recovered/Resolved]
  - No adverse event [Unknown]
  - Product dose omission [Unknown]
